FAERS Safety Report 5083013-9 (Version None)
Quarter: 2006Q3

REPORT INFORMATION
  Report Type: 
  Country: None (occurrence: None)
  Receive Date: 20060720
  Receipt Date: 20060406
  Transmission Date: 20061208
  Serious: Yes (Hospitalization)
  Sender: FDA-Public Use
  Company Number: 2006048949

PATIENT
  Sex: Female

DRUGS (1)
  1. CELEBREX [Suspect]
     Indication: ILL-DEFINED DISORDER
     Dosage: UNKNOWN (UNK, DAILY), ORAL
     Route: 048
     Dates: start: 20030902, end: 20050210

REACTIONS (1)
  - CEREBROVASCULAR ACCIDENT [None]
